FAERS Safety Report 8613962 (Version 2)
Quarter: 2012Q4

REPORT INFORMATION
  Report Type: 
  Country: US (occurrence: US)
  Receive Date: 20120614
  Receipt Date: 20120914
  Transmission Date: 20130627
  Serious: Yes (Hospitalization, Other)
  Sender: FDA-Public Use
  Company Number: US-BAYER-2012-057460

PATIENT
  Age: 38 Year
  Sex: Female
  Weight: 75.75 kg

DRUGS (22)
  1. YAZ [Suspect]
     Indication: INFERTILITY FEMALE
  2. AVAPRO [Concomitant]
     Dosage: 150 mg, QD
  3. CELEBREX [Concomitant]
     Dosage: 200 mg, BID
  4. NEXIUM [Concomitant]
     Dosage: 400 mg, BID
  5. TRAZODONE [Concomitant]
     Dosage: 50 mg, 1 every night at bedtime.
  6. XANAX [Concomitant]
     Indication: ANXIETY
     Dosage: 0.25 mg, TID, prn
  7. ZOLOFT [Concomitant]
     Dosage: 500 mg, 1 qd
  8. DULCOLAX [BISACODYL] [Concomitant]
     Indication: CONSTIPATION
  9. AMBIEN [Concomitant]
     Indication: INSOMNIA
     Dosage: 10 mg, PRN
  10. TYLENOL [Concomitant]
     Indication: PAIN
     Dosage: 325 mg,1-2 q, 4 hours prn
  11. TYLENOL [Concomitant]
     Indication: PYREXIA
  12. ALIMENTARY TRACT AND METABOLISM [Concomitant]
     Indication: DYSPEPSIA
     Dosage: 15cc q 6 hours prn
  13. DEXAMETHASONE [Concomitant]
  14. AZITHROMYCIN [Concomitant]
     Dosage: 250 mg, UNK
  15. FLUCONAZOLE [Concomitant]
     Dosage: 150 mg, UNK
  16. CEFDINIR [Concomitant]
     Dosage: 300 mg, UNK
  17. NOHIST-EXT [Concomitant]
     Dosage: Ext caplet
  18. LEVAQUIN [Concomitant]
     Dosage: 500 mg, UNK
  19. DOXYCYCLINE [Concomitant]
     Dosage: 100 mg, UNK
  20. DEXPAK [Concomitant]
     Dosage: 1.5 mg, UNK
  21. MUPIROCIN [Concomitant]
     Dosage: 2 %
  22. MYLANTA [Concomitant]
     Indication: DYSPEPSIA
     Dosage: 15 mL every 6 hours as needed
     Route: 048

REACTIONS (4)
  - Pulmonary embolism [Recovered/Resolved]
  - Deep vein thrombosis [None]
  - Gallbladder disorder [Recovered/Resolved]
  - Biliary dyskinesia [Recovered/Resolved]
